FAERS Safety Report 7662773-4 (Version None)
Quarter: 2011Q3

REPORT INFORMATION
  Report Type: 
  Country: None (occurrence: None)
  Receive Date: 20110805
  Receipt Date: 20100830
  Transmission Date: 20111222
  Serious: No
  Sender: FDA-Public Use
  Company Number: US-ABBOTT-10P-163-0666793-00

PATIENT
  Sex: Male
  Weight: 114.41 kg

DRUGS (2)
  1. UNKNOWN MEDICATION [Concomitant]
     Indication: GOUT
  2. NIASPAN [Suspect]
     Indication: PRODUCT USED FOR UNKNOWN INDICATION
     Dosage: AT BEDTIME
     Dates: start: 20100816

REACTIONS (1)
  - RASH [None]
